FAERS Safety Report 5506168-8 (Version None)
Quarter: 2007Q4

REPORT INFORMATION
  Report Type: 
  Country: None (occurrence: None)
  Receive Date: 20071102
  Receipt Date: 20071102
  Transmission Date: 20080405
  Serious: No
  Sender: FDA-Public Use
  Company Number: None

PATIENT
  Sex: Male
  Weight: 92.9874 kg

DRUGS (2)
  1. JANUVIA [Suspect]
     Indication: DRUG THERAPY CHANGED
     Dosage: 1 PILL DAILY PO
     Route: 048
  2. JANUVIA [Suspect]
     Indication: TYPE 2 DIABETES MELLITUS
     Dosage: 1 PILL DAILY PO
     Route: 048

REACTIONS (5)
  - DYSPHONIA [None]
  - IMPAIRED WORK ABILITY [None]
  - NO THERAPEUTIC RESPONSE [None]
  - VAGUS NERVE DISORDER [None]
  - VOCAL CORD DISORDER [None]
